FAERS Safety Report 8364481-3 (Version None)
Quarter: 2012Q2

REPORT INFORMATION
  Report Type: 
  Country: None (occurrence: None)
  Receive Date: 20120516
  Receipt Date: 20120511
  Transmission Date: 20120825
  Serious: Yes (Other)
  Sender: FDA-Public Use
  Company Number: US-BAYER-2012-047320

PATIENT
  Age: 43 Year
  Sex: Female
  Weight: 85.261 kg

DRUGS (8)
  1. FLAGYL [Concomitant]
     Dosage: 500 MG, UNK
     Dates: start: 20070306
  2. YAZ [Suspect]
  3. LOVAZA [Concomitant]
     Dosage: 1000 MG, DAILY
     Dates: start: 20070512
  4. TERCONAZOLE [Concomitant]
     Dosage: 0.8 UNK, UNK
     Dates: start: 20070329
  5. HYCOTUSS [Concomitant]
     Dosage: 5 CC EVERY 6 HOURS AS NEEDED
     Dates: start: 20070430
  6. PENICILLIN [Concomitant]
     Dosage: 500 MG, UNK
     Dates: start: 20070322
  7. ZITHROMAX [Concomitant]
     Dosage: 250 MG, UNK
     Dates: start: 20070430
  8. MULTIVITAMIN [Concomitant]
     Dosage: 1 TAB (INTERPRETED TABLET) DAILY
     Route: 048
     Dates: start: 20070512

REACTIONS (1)
  - PULMONARY EMBOLISM [None]
